FAERS Safety Report 4648772-5 (Version None)
Quarter: 2005Q2

REPORT INFORMATION
  Report Type: 
  Country: None (occurrence: None)
  Receive Date: 20050427
  Receipt Date: 20050420
  Transmission Date: 20051028
  Serious: Yes (Death, Other)
  Sender: FDA-Public Use
  Company Number: 200510793BCC

PATIENT
  Age: 6 Year
  Sex: Male
  Weight: 19.0511 kg

DRUGS (1)
  1. ORIGINAL ALKA-SELTZER TABLETS [Suspect]
     Indication: NASOPHARYNGITIS
     Dosage: 325/1915 MG, ONCE, ORAL
     Route: 048
     Dates: start: 20050118

REACTIONS (4)
  - ABASIA [None]
  - CONFUSIONAL STATE [None]
  - HYPERSOMNIA [None]
  - MEMORY IMPAIRMENT [None]
